FAERS Safety Report 9836272 (Version 15)
Quarter: 2016Q2

REPORT INFORMATION
  Report Type: Spontaneous
  Country: CA (occurrence: CA)
  Receive Date: 20140123
  Receipt Date: 20160613
  Transmission Date: 20160815
  Serious: Yes (Hospitalization, Other)
  Sender: FDA-Public Use
  Company Number: CA-ROCHE-1336600

PATIENT
  Age: 33 Year
  Sex: Male

DRUGS (19)
  1. XOLAIR [Suspect]
     Active Substance: OMALIZUMAB
     Route: 058
     Dates: start: 20131120
  2. XOLAIR [Suspect]
     Active Substance: OMALIZUMAB
     Route: 058
     Dates: start: 20140211
  3. XOLAIR [Suspect]
     Active Substance: OMALIZUMAB
     Route: 058
     Dates: start: 20150505
  4. SYMBICORT [Concomitant]
     Active Substance: BUDESONIDE\FORMOTEROL FUMARATE DIHYDRATE
  5. XOLAIR [Suspect]
     Active Substance: OMALIZUMAB
     Route: 058
     Dates: start: 20141217
  6. PREDNISONE. [Concomitant]
     Active Substance: PREDNISONE
     Indication: ASTHMA
  7. PREDNISONE. [Concomitant]
     Active Substance: PREDNISONE
     Indication: VASCULITIS
  8. XOLAIR [Suspect]
     Active Substance: OMALIZUMAB
     Route: 058
     Dates: start: 20130731
  9. METHOTREXATE (METHOTREXATE SODIUM) [Concomitant]
     Active Substance: METHOTREXATE SODIUM
  10. XOLAIR [Suspect]
     Active Substance: OMALIZUMAB
     Route: 058
     Dates: start: 20130605
  11. PNEUMOVAX 23 [Suspect]
     Active Substance: PNEUMOCOCCAL VACCINE, POLYVALENT 23
     Indication: PRODUCT USED FOR UNKNOWN INDICATION
     Route: 065
     Dates: start: 20121211
  12. XOLAIR [Suspect]
     Active Substance: OMALIZUMAB
     Indication: ASTHMA
     Route: 058
     Dates: start: 20111228
  13. XOLAIR [Suspect]
     Active Substance: OMALIZUMAB
     Indication: ASTHMA
     Route: 058
     Dates: start: 20130211
  14. XOLAIR [Suspect]
     Active Substance: OMALIZUMAB
     Route: 058
     Dates: start: 20130408
  15. XOLAIR [Suspect]
     Active Substance: OMALIZUMAB
     Route: 058
     Dates: start: 20140603
  16. XOLAIR [Suspect]
     Active Substance: OMALIZUMAB
     Route: 058
     Dates: start: 20160112
  17. XOLAIR [Suspect]
     Active Substance: OMALIZUMAB
     Route: 058
     Dates: start: 20160505
  18. XOLAIR [Suspect]
     Active Substance: OMALIZUMAB
     Route: 058
     Dates: start: 20150602
  19. ACTONEL [Concomitant]
     Active Substance: RISEDRONATE SODIUM

REACTIONS (28)
  - Bronchitis [Unknown]
  - Device related infection [Unknown]
  - Respiratory rate increased [Unknown]
  - Asthma [Unknown]
  - Nasal congestion [Unknown]
  - Breath sounds abnormal [Unknown]
  - Weight increased [Unknown]
  - Vasculitis [Unknown]
  - Fall [Unknown]
  - Inflammation [Unknown]
  - Injection site pain [Unknown]
  - Heart rate increased [Unknown]
  - Wrist fracture [Unknown]
  - Ilium fracture [Unknown]
  - Ear infection [Unknown]
  - Influenza [Recovering/Resolving]
  - Sputum discoloured [Unknown]
  - Lower respiratory tract congestion [Unknown]
  - Road traffic accident [Unknown]
  - Rib fracture [Unknown]
  - Productive cough [Unknown]
  - Hypersensitivity [Unknown]
  - Lower respiratory tract infection [Unknown]
  - Gastroenteritis viral [Unknown]
  - Wound [Unknown]
  - Nocturia [Unknown]
  - Weight decreased [Unknown]
  - Oropharyngeal pain [Unknown]

NARRATIVE: CASE EVENT DATE: 201211
